FAERS Safety Report 7277742-6 (Version None)
Quarter: 2010Q4

REPORT INFORMATION
  Report Type: 
  Country: None (occurrence: None)
  Receive Date: 20101215
  Receipt Date: 20100825
  Transmission Date: 20110411
  Serious: Yes (Other)
  Sender: FDA-Public Use
  Company Number: DSA_43549_2010

PATIENT
  Sex: Male

DRUGS (1)
  1. XENAZINE [Suspect]
     Indication: TOURETTE'S DISORDER
     Dosage: (12.5 MG QD ORAL)
     Route: 048
     Dates: start: 20100101, end: 20100701

REACTIONS (2)
  - ANXIETY [None]
  - DEPRESSION [None]
